FAERS Safety Report 6580781-1 (Version None)
Quarter: 2010Q1

REPORT INFORMATION
  Report Type: 
  Country: None (occurrence: None)
  Receive Date: 20100213
  Receipt Date: 20100201
  Transmission Date: 20100710
  Serious: Yes (Hospitalization, Other)
  Sender: FDA-Public Use
  Company Number: SE-ELI_LILLY_AND_COMPANY-SE200903005168

PATIENT
  Sex: Male

DRUGS (7)
  1. BYETTA [Suspect]
     Indication: TYPE 2 DIABETES MELLITUS
     Dosage: 5 UG, 2/D
     Dates: start: 20090225, end: 20090228
  2. TRIATEC COMP [Concomitant]
     Dosage: 2.5/25MG DAILY (1/D)
  3. TRIATEC COMP [Concomitant]
     Dosage: 5/25 MG
     Dates: start: 20090224
  4. IMDUR [Concomitant]
     Dosage: 60 MG, DAILY (1/D)
  5. METOPROLOL TARTRATE [Concomitant]
     Dosage: 50 MG, DAILY (1/D)
  6. SIMVASTATIN [Concomitant]
     Dosage: 20 MG, EACH EVENING
  7. TROMBYL [Concomitant]
     Dosage: 75 MG, DAILY (1/D)

REACTIONS (1)
  - SYNCOPE [None]
